FAERS Safety Report 7077414-7 (Version None)
Quarter: 2010Q4

REPORT INFORMATION
  Report Type: 
  Country: None (occurrence: None)
  Receive Date: 20101021
  Receipt Date: 20101006
  Transmission Date: 20110411
  Serious: Yes (Other)
  Sender: FDA-Public Use
  Company Number: 1000016683

PATIENT
  Age: 37 Year
  Sex: Male

DRUGS (2)
  1. ESCITALOPRAM OXALATE [Suspect]
     Dosage: ORAL
     Route: 048
     Dates: start: 20101006, end: 20101006
  2. OLANZAPINE [Suspect]
     Dosage: (900 MG, ONCE)
     Dates: start: 20101006, end: 20101006

REACTIONS (4)
  - ACCIDENTAL OVERDOSE [None]
  - DYSKINESIA [None]
  - SOPOR [None]
  - TACHYCARDIA [None]
